FAERS Safety Report 26212430 (Version 1)
Quarter: 2025Q4

REPORT INFORMATION
  Report Type: Spontaneous
  Country: US (occurrence: US)
  Receive Date: 20251230
  Receipt Date: 20251230
  Transmission Date: 20260118
  Serious: Yes (Other)
  Sender: TEVA
  Company Number: US-TEVA-VS-3406345

PATIENT
  Age: 56 Year
  Sex: Male

DRUGS (1)
  1. CIPROFLOXACIN [Suspect]
     Active Substance: CIPROFLOXACIN
     Indication: Prostatitis
     Route: 065

REACTIONS (4)
  - Tubulointerstitial nephritis [Not Recovered/Not Resolved]
  - Rebound effect [Unknown]
  - Drug ineffective [Unknown]
  - Renal impairment [Unknown]
